FAERS Safety Report 17827841 (Version 1)
Quarter: 2020Q2

REPORT INFORMATION
  Report Type: Spontaneous
  Country: US (occurrence: US)
  Receive Date: 20200527
  Receipt Date: 20200527
  Transmission Date: 20200714
  Serious: No
  Sender: FDA-Public Use
  Company Number: US-SA-2020SA134424

PATIENT
  Sex: Female

DRUGS (1)
  1. DUPIXENT [Suspect]
     Active Substance: DUPILUMAB
     Indication: DERMATITIS ATOPIC
     Dosage: 200 MG, QOW
     Route: 058
     Dates: start: 202004

REACTIONS (8)
  - Pruritus [Unknown]
  - Throat irritation [Unknown]
  - Fatigue [Unknown]
  - Weight decreased [Unknown]
  - Erythema [Unknown]
  - Swelling face [Unknown]
  - Nausea [Unknown]
  - Unevaluable event [Unknown]
